FAERS Safety Report 13194631 (Version 1)
Quarter: 2017Q1

REPORT INFORMATION
  Report Type: Spontaneous
  Country: US (occurrence: US)
  Receive Date: 20170207
  Receipt Date: 20170207
  Transmission Date: 20170428
  Serious: No
  Sender: FDA-Public Use
  Company Number: US-JAZZ-2016-US-015069

PATIENT
  Sex: Female

DRUGS (2)
  1. PRIALT [Suspect]
     Active Substance: ZICONOTIDE ACETATE
     Indication: PAIN
  2. PRIALT [Suspect]
     Active Substance: ZICONOTIDE ACETATE
     Indication: OSTEOARTHRITIS
     Dosage: UNK ?G, QH
     Route: 037

REACTIONS (3)
  - Headache [Unknown]
  - Disorientation [Unknown]
  - Amnesia [Unknown]
